FAERS Safety Report 13860746 (Version 1)
Quarter: 2017Q3

REPORT INFORMATION
  Report Type: Spontaneous
  Country: US (occurrence: US)
  Receive Date: 20170811
  Receipt Date: 20170811
  Transmission Date: 20171127
  Serious: No
  Sender: FDA-Public Use
  Company Number: None

PATIENT
  Age: 49 Year
  Sex: Female

DRUGS (10)
  1. NICORETTE [Concomitant]
     Active Substance: NICOTINE
  2. NORCO [Concomitant]
     Active Substance: ACETAMINOPHEN\HYDROCODONE BITARTRATE
  3. FLUOXETINE [Concomitant]
     Active Substance: FLUOXETINE HYDROCHLORIDE
  4. VITAMIN D3 [Concomitant]
     Active Substance: CHOLECALCIFEROL
  5. METHENAMINE [Concomitant]
     Active Substance: METHENAMINE
  6. DEXTROAMPHETAMINE. [Concomitant]
     Active Substance: DEXTROAMPHETAMINE
  7. BACLOFEN. [Concomitant]
     Active Substance: BACLOFEN
  8. CITROCAL WITH 1000 IU OF VITAMIN D [Concomitant]
     Active Substance: CHOLECALCIFEROL
  9. AMPYRA [Suspect]
     Active Substance: DALFAMPRIDINE
     Indication: MULTIPLE SCLEROSIS
     Route: 048
     Dates: start: 201006
  10. RITUXAN [Concomitant]
     Active Substance: RITUXIMAB

REACTIONS (2)
  - Full blood count abnormal [None]
  - Urine analysis abnormal [None]

NARRATIVE: CASE EVENT DATE: 20170725
